FAERS Safety Report 25542767 (Version 3)
Quarter: 2025Q3

REPORT INFORMATION
  Report Type: Spontaneous
  Country: CA (occurrence: CA)
  Receive Date: 20250711
  Receipt Date: 20250806
  Transmission Date: 20251021
  Serious: Yes (Other)
  Sender: CELLTRION
  Company Number: CA-PFIZER INC-202500107178

PATIENT

DRUGS (23)
  1. INFLECTRA [Suspect]
     Active Substance: INFLIXIMAB-DYYB
     Indication: Crohn^s disease
     Dates: start: 20220713, end: 20250211
  2. INFLECTRA [Suspect]
     Active Substance: INFLIXIMAB-DYYB
     Dates: start: 20250414
  3. INFLECTRA [Suspect]
     Active Substance: INFLIXIMAB-DYYB
     Dates: start: 20250703
  4. ATENOLOL [Concomitant]
     Active Substance: ATENOLOL
  5. ATORVASTATIN [Concomitant]
     Active Substance: ATORVASTATIN
  6. CLONIDINE [Concomitant]
     Active Substance: CLONIDINE
  7. DICYCLOMINE [Concomitant]
     Active Substance: DICYCLOMINE HYDROCHLORIDE
  8. IRON [Concomitant]
     Active Substance: IRON
  9. GAVISCON [ALUMINIUM HYDROXIDE;MAGNESIUM CARBONATE] [Concomitant]
  10. IRBESARTAN [Concomitant]
     Active Substance: IRBESARTAN
  11. ISOSORBIDE MONONITRATE [Concomitant]
     Active Substance: ISOSORBIDE MONONITRATE
  12. IVABRADINE [Concomitant]
     Active Substance: IVABRADINE
  13. CARBIDOPA\LEVODOPA [Concomitant]
     Active Substance: CARBIDOPA\LEVODOPA
  14. MOMETASONE [Concomitant]
     Active Substance: MOMETASONE
  15. OZEMPIC [Concomitant]
     Active Substance: SEMAGLUTIDE
  16. PROCTOFOAM [Concomitant]
     Active Substance: PRAMOXINE HYDROCHLORIDE
  17. PREGABALIN [Concomitant]
     Active Substance: PREGABALIN
  18. RABEPRAZOLE [Concomitant]
     Active Substance: RABEPRAZOLE
  19. ASPIRIN [Concomitant]
     Active Substance: ASPIRIN
  20. MORPHINE SULFATE [Concomitant]
     Active Substance: MORPHINE SULFATE
  21. VENLAFAXINE [Concomitant]
     Active Substance: VENLAFAXINE HYDROCHLORIDE
  22. VENLAFAXINE [Concomitant]
     Active Substance: VENLAFAXINE HYDROCHLORIDE
  23. DICYCLOMINE [Concomitant]
     Active Substance: DICYCLOMINE HYDROCHLORIDE

REACTIONS (1)
  - Neuroprosthesis implantation [Recovered/Resolved]

NARRATIVE: CASE EVENT DATE: 20250602
